FAERS Safety Report 23986020 (Version 1)
Quarter: 2024Q2

REPORT INFORMATION
  Report Type: Spontaneous
  Country: JP (occurrence: JP)
  Receive Date: 20240618
  Receipt Date: 20240618
  Transmission Date: 20240716
  Serious: Yes (Other)
  Sender: FDA-Public Use
  Company Number: JP-Merck Healthcare KGaA-2024031006

PATIENT
  Age: 53 Year
  Sex: Male

DRUGS (4)
  1. ERBITUX [Suspect]
     Active Substance: CETUXIMAB
     Indication: Colon cancer metastatic
     Dosage: 400 MG/M2, UNK
     Route: 041
  2. ERBITUX [Suspect]
     Active Substance: CETUXIMAB
     Dosage: 250 MG/M2, WEEKLY (1/W)
     Route: 041
  3. ENCORAFENIB [Concomitant]
     Active Substance: ENCORAFENIB
     Indication: Colon cancer metastatic
     Dosage: 300 MG, DAILY
  4. BINIMETINIB [Concomitant]
     Active Substance: BINIMETINIB
     Indication: Colon cancer metastatic
     Dosage: 90 MG, DAILY

REACTIONS (3)
  - Thrombophlebitis migrans [Unknown]
  - Malignant neoplasm progression [Unknown]
  - Drug ineffective [Unknown]

NARRATIVE: CASE EVENT DATE: 20230601
